FAERS Safety Report 15901552 (Version 1)
Quarter: 2019Q1

REPORT INFORMATION
  Report Type: Spontaneous
  Country: SE (occurrence: SE)
  Receive Date: 20190201
  Receipt Date: 20190201
  Transmission Date: 20190417
  Serious: Yes (Other)
  Sender: FDA-Public Use
  Company Number: SE-TEVA-2019-SE-1007926

PATIENT
  Age: 51 Year
  Sex: Female

DRUGS (6)
  1. METOPROLOL. [Suspect]
     Active Substance: METOPROLOL
     Dosage: 50 MILLIGRAM DAILY;
     Route: 065
     Dates: start: 201808, end: 20180922
  2. TROMBYL [Concomitant]
     Active Substance: ASPIRIN
  3. LOSARSTAD COMP [Concomitant]
     Active Substance: HYDROCHLOROTHIAZIDE\LOSARTAN POTASSIUM
  4. ATORVASTATIN [Concomitant]
     Active Substance: ATORVASTATIN
  5. AMLODIPINE [Concomitant]
     Active Substance: AMLODIPINE BESYLATE
  6. BRILIQUE [Concomitant]
     Active Substance: TICAGRELOR
     Dosage: 180 MILLIGRAM DAILY;
     Dates: start: 201808, end: 20180919

REACTIONS (3)
  - Dyspnoea at rest [Unknown]
  - Peripheral coldness [Unknown]
  - Heart rate decreased [Unknown]

NARRATIVE: CASE EVENT DATE: 2018
